FAERS Safety Report 8356218-9 (Version None)
Quarter: 2012Q2

REPORT INFORMATION
  Report Type: 
  Country: None (occurrence: None)
  Receive Date: 20120514
  Receipt Date: 20120501
  Transmission Date: 20120825
  Serious: Yes (Other)
  Sender: FDA-Public Use
  Company Number: US-VIROPHARMA INCORPORATED-20120418CINRY2884

PATIENT
  Sex: Female
  Weight: 121.22 kg

DRUGS (7)
  1. BENADRYL [Concomitant]
     Indication: SEASONAL ALLERGY
     Dosage: UNKNOWN
     Route: 065
  2. CINRYZE [Suspect]
     Dates: start: 20120301, end: 20120401
  3. HEPARIN [Concomitant]
     Indication: CENTRAL VENOUS CATHETERISATION
  4. CINRYZE [Suspect]
     Dates: start: 20120401
  5. NAPROXEN (ALEVE) [Concomitant]
     Indication: PRODUCT USED FOR UNKNOWN INDICATION
     Dosage: UNKNOWN
     Route: 065
  6. HYDROCHLOROTHIAZIDE [Concomitant]
     Indication: PRODUCT USED FOR UNKNOWN INDICATION
     Dosage: UNKNOWN
     Route: 065
  7. CINRYZE [Suspect]
     Indication: HEREDITARY ANGIOEDEMA
     Dates: start: 20090715, end: 20120301

REACTIONS (4)
  - INCORRECT DRUG ADMINISTRATION RATE [None]
  - SUBCLAVIAN VEIN THROMBOSIS [None]
  - OFF LABEL USE [None]
  - INAPPROPRIATE SCHEDULE OF DRUG ADMINISTRATION [None]
